FAERS Safety Report 9213374 (Version 1)
Quarter: 2013Q2

REPORT INFORMATION
  Report Type: Spontaneous
  Country: FR (occurrence: FR)
  Receive Date: 20130405
  Receipt Date: 20130405
  Transmission Date: 20140414
  Serious: Yes (Hospitalization)
  Sender: FDA-Public Use
  Company Number: PHHY2013FR032967

PATIENT
  Age: 54 Year
  Sex: Female

DRUGS (2)
  1. ZOMETA [Suspect]
     Indication: BREAST CANCER METASTATIC
     Dosage: UNK UKN, UNK
     Route: 042
     Dates: end: 2009
  2. CLASTOBAN [Concomitant]
     Indication: BREAST CANCER METASTATIC
     Dosage: 1 DF, DAILY
     Route: 048
     Dates: start: 201006, end: 201102

REACTIONS (2)
  - Osteitis [Not Recovered/Not Resolved]
  - Osteonecrosis of jaw [Not Recovered/Not Resolved]
